FAERS Safety Report 21541415 (Version 4)
Quarter: 2023Q2

REPORT INFORMATION
  Report Type: Spontaneous
  Country: US (occurrence: US)
  Receive Date: 20221102
  Receipt Date: 20230606
  Transmission Date: 20230722
  Serious: Yes (Hospitalization, Other)
  Sender: FDA-Public Use
  Company Number: US-PFIZER INC-PV202200094433

PATIENT
  Age: 77 Year
  Sex: Female
  Weight: 91.156 kg

DRUGS (1)
  1. XELJANZ XR [Suspect]
     Active Substance: TOFACITINIB CITRATE
     Indication: Psoriatic arthropathy
     Dosage: 11 MG, 1X/DAY
     Dates: start: 20210503, end: 20220422

REACTIONS (6)
  - Neoplasm malignant [Recovered/Resolved]
  - Weight decreased [Not Recovered/Not Resolved]
  - Blood pressure abnormal [Recovered/Resolved]
  - Adenocarcinoma [Unknown]
  - Metabolic surgery [Unknown]
  - Road traffic accident [Unknown]

NARRATIVE: CASE EVENT DATE: 20210914
